FAERS Safety Report 9165295 (Version 1)
Quarter: 2013Q1

REPORT INFORMATION
  Report Type: Spontaneous
  Country: IT (occurrence: IT)
  Receive Date: 20130315
  Receipt Date: 20130315
  Transmission Date: 20140127
  Serious: Yes (Death)
  Sender: FDA-Public Use
  Company Number: IT-SANOFI-AVENTIS-2013SA023712

PATIENT
  Age: 65 Year
  Sex: Male
  Weight: 67 kg

DRUGS (4)
  1. JEVTANA [Suspect]
     Indication: PROSTATE CANCER METASTATIC
     Dosage: DOSE: FULL DOSE
     Route: 042
     Dates: start: 20130125, end: 20130125
  2. JEVTANA [Suspect]
     Indication: PROSTATE CANCER METASTATIC
     Route: 042
     Dates: start: 20130225, end: 20130225
  3. PREDNISONE [Concomitant]
     Route: 048
     Dates: start: 20130125, end: 20130303
  4. LANSOPRAZOLE [Concomitant]
     Route: 048
     Dates: start: 20130125, end: 20130303

REACTIONS (4)
  - Respiratory failure [Fatal]
  - Pancytopenia [Fatal]
  - Multi-organ failure [Fatal]
  - Septic shock [Fatal]
